FAERS Safety Report 19254520 (Version 1)
Quarter: 2021Q2

REPORT INFORMATION
  Report Type: Spontaneous
  Country: GB (occurrence: GB)
  Receive Date: 20210513
  Receipt Date: 20210513
  Transmission Date: 20210717
  Serious: Yes (Other)
  Sender: FDA-Public Use
  Company Number: GB-TORRENT-00025650

PATIENT
  Sex: Male

DRUGS (1)
  1. LAMOTRIGINE. [Suspect]
     Active Substance: LAMOTRIGINE
     Indication: EPILEPSY
     Dosage: UNKNOWN

REACTIONS (5)
  - Epilepsy [Unknown]
  - Cluster headache [Unknown]
  - Seizure [Unknown]
  - Tongue biting [Unknown]
  - Drug interaction [Unknown]

NARRATIVE: CASE EVENT DATE: 202104
